FAERS Safety Report 24197426 (Version 1)
Quarter: 2024Q3

REPORT INFORMATION
  Report Type: Report from Study
  Country: US (occurrence: US)
  Receive Date: 20240810
  Receipt Date: 20240810
  Transmission Date: 20241017
  Serious: Yes (Hospitalization, Other)
  Sender: HLS THERAPEUTICS
  Company Number: US-HLS-202400576

PATIENT
  Sex: Female

DRUGS (1)
  1. CLOZAPINE [Suspect]
     Active Substance: CLOZAPINE
     Indication: Schizophrenia
     Dosage: 200 MG ORAL TABLET CLOZAPINE AT SLEEPING TIME
     Route: 048
     Dates: start: 20220516

REACTIONS (2)
  - Schizophrenia [Unknown]
  - Suicidal ideation [Unknown]
